FAERS Safety Report 7494854-2 (Version None)
Quarter: 2011Q2

REPORT INFORMATION
  Report Type: 
  Country: None (occurrence: None)
  Receive Date: 20110520
  Receipt Date: 20110516
  Transmission Date: 20111010
  Serious: Yes (Hospitalization)
  Sender: FDA-Public Use
  Company Number: BR-MEDIMMUNE-MEDI-0013205

PATIENT
  Sex: Female
  Weight: 9.85 kg

DRUGS (3)
  1. FUROSEMIDE [Concomitant]
     Route: 048
  2. DIGOXIN [Concomitant]
     Route: 048
  3. SYNAGIS [Suspect]
     Indication: CARDIAC DISORDER
     Dates: start: 20100101, end: 20110101

REACTIONS (6)
  - DYSPNOEA [None]
  - LIVER DISORDER [None]
  - PNEUMONIA [None]
  - PULMONARY OEDEMA [None]
  - INFLUENZA [None]
  - URINE OUTPUT INCREASED [None]
